FAERS Safety Report 14846639 (Version 4)
Quarter: 2018Q2

REPORT INFORMATION
  Report Type: Spontaneous
  Country: CA (occurrence: CA)
  Receive Date: 20180504
  Receipt Date: 20180518
  Transmission Date: 20180711
  Serious: Yes (Other)
  Sender: FDA-Public Use
  Company Number: CA-HLSUS-2018-CA-000670

PATIENT
  Age: 27 Year
  Sex: Male

DRUGS (1)
  1. CLOZARIL [Suspect]
     Active Substance: CLOZAPINE
     Dosage: 150 MG QHS
     Route: 048
     Dates: start: 20150814

REACTIONS (6)
  - Mental impairment [Unknown]
  - Heart rate increased [Unknown]
  - Leukopenia [Unknown]
  - Neutropenia [Unknown]
  - Catatonia [Unknown]
  - Bedridden [Unknown]

NARRATIVE: CASE EVENT DATE: 20180511
